FAERS Safety Report 22046876 (Version 2)
Quarter: 2023Q1

REPORT INFORMATION
  Report Type: Spontaneous
  Country: US (occurrence: US)
  Receive Date: 20230228
  Receipt Date: 20230301
  Transmission Date: 20230417
  Serious: No
  Sender: FDA-Public Use
  Company Number: US-ALKERMES INC.-ALK-2023-000815

PATIENT
  Sex: Male

DRUGS (1)
  1. VIVITROL [Suspect]
     Active Substance: NALTREXONE
     Indication: Alcoholism
     Dosage: 380 MILLIGRAM, QMO
     Route: 030

REACTIONS (7)
  - Product administered at inappropriate site [Unknown]
  - Gait inability [Unknown]
  - Injection site reaction [Unknown]
  - Injection site haematoma [Unknown]
  - Injection site pain [Unknown]
  - Injection site infection [Unknown]
  - Vomiting [Unknown]
